FAERS Safety Report 13742231 (Version 1)
Quarter: 2017Q3

REPORT INFORMATION
  Report Type: Spontaneous
  Country: GB (occurrence: GB)
  Receive Date: 20170711
  Receipt Date: 20170711
  Transmission Date: 20171127
  Serious: Yes (Other)
  Sender: FDA-Public Use
  Company Number: GB-AMGEN-GBRSP2017064320

PATIENT
  Age: 29 Year
  Sex: Male

DRUGS (1)
  1. ENBREL [Suspect]
     Active Substance: ETANERCEPT
     Indication: PRODUCT USED FOR UNKNOWN INDICATION
     Dosage: 50 MG, UNK
     Route: 058

REACTIONS (11)
  - Lower respiratory tract infection [Unknown]
  - Cyst [Unknown]
  - Injection site inflammation [Unknown]
  - Depressed mood [Unknown]
  - Injection site haemorrhage [Recovered/Resolved]
  - Limb mass [Unknown]
  - Injection site erythema [Unknown]
  - Injection site reaction [Unknown]
  - Feeling abnormal [Recovered/Resolved]
  - Furuncle [Unknown]
  - Injection site pain [Unknown]
